FAERS Safety Report 13755081 (Version 1)
Quarter: 2017Q3

REPORT INFORMATION
  Report Type: Spontaneous
  Country: US (occurrence: US)
  Receive Date: 20170714
  Receipt Date: 20170714
  Transmission Date: 20171127
  Serious: Yes (Hospitalization)
  Sender: FDA-Public Use
  Company Number: None

PATIENT
  Age: 68 Year
  Sex: Female

DRUGS (20)
  1. VOTRIENT [Suspect]
     Active Substance: PAZOPANIB HYDROCHLORIDE
     Indication: RENAL CANCER
     Dosage: DOSE - 800MG/ 600MG?FREQUENCY - FOR 2 DA THEN 3DA
     Route: 048
     Dates: start: 201210
  2. VITAMIN D [Concomitant]
     Active Substance: CHOLECALCIFEROL
  3. LORAZEPAM. [Concomitant]
     Active Substance: LORAZEPAM
  4. KEPPRA [Concomitant]
     Active Substance: LEVETIRACETAM
  5. LIPITOR [Concomitant]
     Active Substance: ATORVASTATIN CALCIUM
  6. HYDROCO/APAP [Concomitant]
     Active Substance: ACETAMINOPHEN\HYDROCODONE
  7. OXYCODONE [Suspect]
     Active Substance: OXYCODONE
  8. ACTOS [Concomitant]
     Active Substance: PIOGLITAZONE HYDROCHLORIDE
  9. CENTRUM SILVER [Concomitant]
     Active Substance: MINERALS\VITAMINS
  10. ZOFRAN [Concomitant]
     Active Substance: ONDANSETRON HYDROCHLORIDE
  11. CYMBALTA [Concomitant]
     Active Substance: DULOXETINE HYDROCHLORIDE
  12. ST JOSEPH AS CHW [Concomitant]
  13. VICODIN [Concomitant]
     Active Substance: ACETAMINOPHEN\HYDROCODONE BITARTRATE
  14. CALCIUM+D [Concomitant]
     Active Substance: CALCIUM\VITAMIN D
  15. ARIMIDEX [Concomitant]
     Active Substance: ANASTROZOLE
  16. LOPERAMIDE [Concomitant]
     Active Substance: LOPERAMIDE
  17. LEVOTHYROXIN [Concomitant]
     Active Substance: LEVOTHYROXINE
  18. SEROQUEL [Concomitant]
     Active Substance: QUETIAPINE FUMARATE
  19. METOPROLOL. [Concomitant]
     Active Substance: METOPROLOL
  20. OMEPRAZOLE. [Concomitant]
     Active Substance: OMEPRAZOLE

REACTIONS (8)
  - Decreased appetite [None]
  - Diarrhoea [None]
  - Wrist fracture [None]
  - Pain [None]
  - Fall [None]
  - Vomiting [None]
  - Drug dose omission [None]
  - Nausea [None]

NARRATIVE: CASE EVENT DATE: 201707
